FAERS Safety Report 17225586 (Version 3)
Quarter: 2020Q1

REPORT INFORMATION
  Report Type: Report from Study
  Country: CN (occurrence: CN)
  Receive Date: 20200102
  Receipt Date: 20200120
  Transmission Date: 20200409
  Serious: Yes (Other)
  Sender: FDA-Public Use
  Company Number: CN-ROCHE-2027357

PATIENT
  Age: 72 Year
  Sex: Male
  Weight: 65 kg

DRUGS (2)
  1. AVASTIN [Suspect]
     Active Substance: BEVACIZUMAB
     Route: 041
  2. AVASTIN [Suspect]
     Active Substance: BEVACIZUMAB
     Indication: COLORECTAL CANCER
     Dosage: 400 MG AND 500 MG BY ALTERNATIVE USE
     Route: 041
     Dates: start: 20170503, end: 20171114

REACTIONS (9)
  - Pyrexia [Unknown]
  - Lumbar vertebral fracture [Unknown]
  - Back pain [Unknown]
  - Anal fistula [Unknown]
  - Asthenia [Recovering/Resolving]
  - Fall [Unknown]
  - Intervertebral disc protrusion [Unknown]
  - Rectal perforation [Unknown]
  - Osteoporosis [Unknown]

NARRATIVE: CASE EVENT DATE: 201911
